FAERS Safety Report 4650487-4 (Version None)
Quarter: 2005Q2

REPORT INFORMATION
  Report Type: 
  Country: None (occurrence: None)
  Receive Date: 20050502
  Receipt Date: 20050422
  Transmission Date: 20051028
  Serious: Yes (Hospitalization)
  Sender: FDA-Public Use
  Company Number: FR-MERCK-0504FRA00074

PATIENT
  Age: 63 Year
  Sex: Male

DRUGS (10)
  1. ZOCOR [Suspect]
     Indication: HYPERCHOLESTEROLAEMIA
     Route: 048
     Dates: end: 20050227
  2. VERAPAMIL HYDROCHLORIDE [Suspect]
     Indication: ESSENTIAL HYPERTENSION
     Route: 048
     Dates: start: 20050108, end: 20050227
  3. CYCLOSPORINE [Suspect]
     Indication: RENAL TRANSPLANT
     Route: 048
     Dates: start: 20050109
  4. MYCOPHENOLATE MOFETIL [Concomitant]
     Indication: RENAL TRANSPLANT
     Route: 048
     Dates: start: 20050109
  5. PREDNISOLONE SODIUM METASULFOBENZOATE [Concomitant]
     Indication: RENAL TRANSPLANT
     Route: 048
     Dates: start: 20050109
  6. COZAAR [Concomitant]
     Indication: ESSENTIAL HYPERTENSION
     Route: 048
     Dates: end: 20050227
  7. SULFAMETHOXAZOLE AND TRIMETHOPRIM [Concomitant]
     Route: 065
  8. FUROSEMIDE [Concomitant]
     Route: 065
     Dates: end: 20050227
  9. AMPHOTERICIN B [Concomitant]
     Route: 065
  10. OMEPRAZOLE [Concomitant]
     Route: 065

REACTIONS (5)
  - DRUG INTERACTION [None]
  - NERVOUS SYSTEM DISORDER [None]
  - RENAL FAILURE ACUTE [None]
  - RHABDOMYOLYSIS [None]
  - TRANSAMINASES INCREASED [None]
